FAERS Safety Report 24886052 (Version 2)
Quarter: 2025Q1

REPORT INFORMATION
  Report Type: Spontaneous
  Country: US (occurrence: US)
  Receive Date: 20250125
  Receipt Date: 20250225
  Transmission Date: 20250409
  Serious: No
  Sender: TEVA
  Company Number: US-TEVA-VS-3284358

PATIENT
  Age: 63 Year
  Sex: Female

DRUGS (2)
  1. AJOVY [Suspect]
     Active Substance: FREMANEZUMAB-VFRM
     Indication: Product used for unknown indication
     Dosage: 1.5 ML
     Route: 058
  2. AJOVY [Suspect]
     Active Substance: FREMANEZUMAB-VFRM

REACTIONS (14)
  - Head injury [Unknown]
  - Respiration abnormal [Unknown]
  - Rash [Unknown]
  - Headache [Unknown]
  - Peripheral swelling [Recovering/Resolving]
  - Palpitations [Unknown]
  - Anxiety [Unknown]
  - Abdominal distension [Unknown]
  - Insomnia [Unknown]
  - Pruritus [Unknown]
  - Abdominal pain upper [Unknown]
  - Adverse drug reaction [Unknown]
  - Stress [Unknown]
  - Dry skin [Unknown]
